FAERS Safety Report 5171485-0 (Version None)
Quarter: 2006Q4

REPORT INFORMATION
  Report Type: 
  Country: None (occurrence: None)
  Receive Date: 20061213
  Receipt Date: 20060928
  Transmission Date: 20070319
  Serious: Yes (Other)
  Sender: FDA-Public Use
  Company Number: US-AMGEN-US195076

PATIENT
  Sex: Male
  Weight: 115.8 kg

DRUGS (2)
  1. ENBREL [Suspect]
     Indication: PSORIASIS
     Route: 058
     Dates: start: 20050504, end: 20060719
  2. RAPTIVA [Suspect]
     Indication: PSORIASIS
     Route: 065
     Dates: start: 20021101, end: 20050501

REACTIONS (3)
  - GENERALISED ERYTHEMA [None]
  - HODGKIN'S DISEASE MIXED CELLULARITY STAGE IV [None]
  - OEDEMA PERIPHERAL [None]
